FAERS Safety Report 7426672-5 (Version None)
Quarter: 2011Q2

REPORT INFORMATION
  Report Type: 
  Country: None (occurrence: None)
  Receive Date: 20110420
  Receipt Date: 20110406
  Transmission Date: 20111010
  Serious: Yes (Hospitalization)
  Sender: FDA-Public Use
  Company Number: DE-BAYER-200939494GPV

PATIENT
  Age: 51 Year
  Sex: Female
  Weight: 95 kg

DRUGS (14)
  1. NEXAVAR [Suspect]
     Dosage: 600 MG DAILY
     Route: 048
     Dates: start: 20101201, end: 20101201
  2. DECORTIN [Concomitant]
     Dosage: UNK
     Dates: start: 20090801, end: 20091201
  3. CLEXANE [Concomitant]
     Dosage: 40 MG, QD
     Route: 058
     Dates: start: 20101110
  4. SPIRONOLACTONE [Concomitant]
     Dosage: 100 MG, QD
     Route: 048
     Dates: start: 20110328
  5. LEVOTHYROXINE SODIUM [Concomitant]
     Dosage: 125 ?G, UNK
     Dates: start: 20090801
  6. METFORMIN [Concomitant]
     Dosage: 1000 MG, BID
     Dates: start: 20090801
  7. NEXAVAR [Suspect]
     Dosage: 800 MG (DAILY DOSE), , ORAL
     Route: 048
     Dates: start: 20090924, end: 20091005
  8. NEXAVAR [Suspect]
     Dosage: 400 MG (DAILY DOSE), , ORAL
     Route: 048
     Dates: start: 20100118
  9. NEXAVAR [Suspect]
     Indication: HEPATIC NEOPLASM MALIGNANT
     Dosage: 400 MG (DAILY DOSE), , ORAL
     Route: 048
     Dates: start: 20090907, end: 20090923
  10. PANTOPRAZOLE [Concomitant]
     Dosage: 40 MG, UNK
     Dates: start: 20090801
  11. NEXAVAR [Suspect]
     Dosage: 400 MG, QD
     Route: 048
     Dates: start: 20110330
  12. INSULIN [Concomitant]
     Dosage: UNK UNK, PRN
     Dates: start: 20090801
  13. FUROSEMID [Concomitant]
     Dosage: 20 MG, QD
     Dates: end: 20110328
  14. TORSEMIDE [Concomitant]
     Dosage: 10 MG, UNK
     Route: 048
     Dates: start: 20110328

REACTIONS (1)
  - NECROTISING FASCIITIS [None]
